FAERS Safety Report 8256758-7 (Version None)
Quarter: 2012Q2

REPORT INFORMATION
  Report Type: 
  Country: None (occurrence: None)
  Receive Date: 20120403
  Receipt Date: 20120327
  Transmission Date: 20120825
  Serious: Yes (Other)
  Sender: FDA-Public Use
  Company Number: US-PFIZER INC-2012078704

PATIENT
  Sex: Female
  Weight: 63.492 kg

DRUGS (3)
  1. IBUPROFEN [Concomitant]
     Indication: HEADACHE
  2. PREMPRO [Suspect]
     Indication: MENOPAUSAL SYMPTOMS
     Dosage: 0.625/5 MG, UNK
     Route: 048
     Dates: start: 20110101, end: 20120201
  3. ALLOPURINOL [Concomitant]
     Indication: GOUT
     Dosage: UNK

REACTIONS (2)
  - HAEMORRHAGE [None]
  - HEADACHE [None]
